FAERS Safety Report 6891673-2 (Version None)
Quarter: 2010Q3

REPORT INFORMATION
  Report Type: 
  Country: None (occurrence: None)
  Receive Date: 20100731
  Receipt Date: 20080102
  Transmission Date: 20110219
  Serious: No
  Sender: FDA-Public Use
  Company Number: US-PFIZER INC-2007074703

PATIENT
  Sex: Male
  Weight: 83.91 kg

DRUGS (4)
  1. NEURONTIN [Suspect]
     Indication: NEUROPATHY PERIPHERAL
  2. NORTRIPTYLINE [Suspect]
     Indication: NEUROPATHY PERIPHERAL
  3. LISINOPRIL [Concomitant]
     Indication: HYPERTENSION
  4. LIPITOR [Concomitant]
     Indication: BLOOD CHOLESTEROL INCREASED

REACTIONS (1)
  - DRUG INEFFECTIVE [None]
